FAERS Safety Report 6813466-4 (Version None)
Quarter: 2010Q3

REPORT INFORMATION
  Report Type: 
  Country: None (occurrence: None)
  Receive Date: 20100701
  Receipt Date: 20100624
  Transmission Date: 20110219
  Serious: Yes (Hospitalization, Other)
  Sender: FDA-Public Use
  Company Number: US-PFIZER INC-2010079801

PATIENT
  Sex: Male
  Weight: 102.4 kg

DRUGS (14)
  1. CHANTIX [Suspect]
     Indication: SMOKING CESSATION THERAPY
     Dosage: 0.5 MG, 1X/DAY
     Route: 048
     Dates: start: 20100519, end: 20100501
  2. CHANTIX [Suspect]
     Dosage: 1 MG, 2X/DAY
     Dates: start: 20100501, end: 20100601
  3. INDOMETHACIN [Suspect]
     Indication: NEUROPATHY PERIPHERAL
     Dosage: 50 MG, 3X/DAY
     Route: 048
     Dates: start: 20090101, end: 20100614
  4. CENTRAVIT [Concomitant]
     Dosage: UNK, DAILY
  5. NORTRIPTYLINE [Concomitant]
     Dosage: 25 MG, UNK
  6. METFORMIN [Concomitant]
     Dosage: 1000 MG, 2X/DAY
  7. LYRICA [Concomitant]
     Dosage: 225 MG, 2X/DAY
     Route: 048
  8. LAMOTRIGINE [Concomitant]
     Dosage: 100 MG, UNK
  9. LASIX [Concomitant]
     Dosage: 20 MG, UNK
  10. LISINOPRIL [Concomitant]
     Dosage: 10 MG, UNK
  11. ZOCOR [Concomitant]
     Dosage: 20 MG, UNK
  12. TRAZODONE [Concomitant]
     Dosage: 200 MG, UNK
  13. ZOLOFT [Concomitant]
     Dosage: 100 MG, UNK
  14. LORAZEPAM [Concomitant]
     Dosage: 1 MG, 4X/DAY

REACTIONS (2)
  - RASH GENERALISED [None]
  - ULCER HAEMORRHAGE [None]
